FAERS Safety Report 9815587 (Version 1)
Quarter: 2014Q1

REPORT INFORMATION
  Report Type: Spontaneous
  Country: IT (occurrence: None)
  Receive Date: 20140110
  Receipt Date: 20140110
  Transmission Date: 20141002
  Serious: Yes (Hospitalization)
  Sender: FDA-Public Use
  Company Number: 2013AP010845

PATIENT
  Age: 85 Year
  Sex: Male

DRUGS (2)
  1. LEVOFLOXACIN [Suspect]
     Indication: HYPERPYREXIA
     Route: 048
     Dates: start: 20130530, end: 20130508
  2. XELODA [Suspect]
     Indication: ADENOCARCINOMA OF COLON
     Dosage: TAB_FILM
     Route: 048
     Dates: start: 20121001, end: 20130401

REACTIONS (16)
  - Asthenia [None]
  - Dialysis [None]
  - Pulmonary oedema [None]
  - Renal failure acute [None]
  - Hyperpyrexia [None]
  - Blood albumin decreased [None]
  - Iron deficiency anaemia [None]
  - Activated partial thromboplastin time prolonged [None]
  - Blood fibrinogen increased [None]
  - Blood glucose decreased [None]
  - Hypergammaglobulinaemia [None]
  - Blood phosphorus increased [None]
  - High density lipoprotein decreased [None]
  - Transferrin increased [None]
  - Antithrombin III decreased [None]
  - Prothrombin time shortened [None]
